FAERS Safety Report 5194222-2 (Version None)
Quarter: 2006Q4

REPORT INFORMATION
  Report Type: 
  Country: None (occurrence: None)
  Receive Date: 20061228
  Receipt Date: 20061130
  Transmission Date: 20070319
  Serious: Yes (Other)
  Sender: FDA-Public Use
  Company Number: NL-PFIZER INC-2006148606

PATIENT
  Sex: Female

DRUGS (3)
  1. LYRICA [Suspect]
     Indication: MYELOPATHY
     Route: 048
  2. LYRICA [Suspect]
     Indication: PAIN
  3. BACLOFEN [Concomitant]
     Route: 048

REACTIONS (2)
  - FEELING DRUNK [None]
  - SYNCOPE VASOVAGAL [None]
